FAERS Safety Report 25058173 (Version 1)
Quarter: 2025Q1

REPORT INFORMATION
  Report Type: Spontaneous
  Country: KW (occurrence: KW)
  Receive Date: 20250310
  Receipt Date: 20250310
  Transmission Date: 20250408
  Serious: Yes (Life-Threatening, Hospitalization, Other)
  Sender: SANDOZ
  Company Number: KW-SANDOZ-SDZ2025KW014104

PATIENT
  Age: 16 Year
  Sex: Male

DRUGS (3)
  1. METHOTREXATE [Suspect]
     Active Substance: METHOTREXATE
     Indication: Acute lymphocytic leukaemia
     Route: 065
  2. MERCAPTOPURINE [Suspect]
     Active Substance: MERCAPTOPURINE
     Indication: Acute lymphocytic leukaemia
     Route: 065
  3. RIVAROXABAN [Concomitant]
     Active Substance: RIVAROXABAN
     Indication: Atrial thrombosis
     Route: 048

REACTIONS (4)
  - Guillain-Barre syndrome [Recovering/Resolving]
  - Infection in an immunocompromised host [Recovering/Resolving]
  - Staphylococcal sepsis [Recovering/Resolving]
  - Neutropenia [Recovering/Resolving]
